FAERS Safety Report 18444831 (Version 1)
Quarter: 2020Q4

REPORT INFORMATION
  Report Type: Spontaneous
  Country: NO (occurrence: NO)
  Receive Date: 20201030
  Receipt Date: 20201030
  Transmission Date: 20210114
  Serious: Yes (Other)
  Sender: FDA-Public Use
  Company Number: NO-ALLERGAN-2040168US

PATIENT
  Sex: Female

DRUGS (12)
  1. NARAMIG [Concomitant]
     Active Substance: NARATRIPTAN HYDROCHLORIDE
     Dosage: 2.5 MG
  2. STILNOCT [Concomitant]
     Active Substance: ZOLPIDEM TARTRATE
     Dosage: 10 MG
  3. VAGIFEM [Concomitant]
     Active Substance: ESTRADIOL
     Dosage: 10 UG
  4. BOTOX [Suspect]
     Active Substance: ONABOTULINUMTOXINA
     Dosage: ACTUAL: DOSING ACCORDING TO MIGRAINE PROTOCOL 200 UNITS
     Route: 030
     Dates: start: 20180417, end: 20180417
  5. RELPAX [Concomitant]
     Active Substance: ELETRIPTAN HYDROBROMIDE
     Dosage: 20 MG
  6. ATARAX [Concomitant]
     Active Substance: HYDROXYZINE HYDROCHLORIDE
     Dosage: 10 MG
  7. PARACET [Concomitant]
     Active Substance: ACETAMINOPHEN
     Dosage: 500 MG
  8. BOTOX [Suspect]
     Active Substance: ONABOTULINUMTOXINA
     Indication: MIGRAINE
     Dosage: ACTUAL: DOSING ACCORDING TO MIGRAINE PROTOCOL 200 UNITS
     Route: 030
     Dates: start: 20190630, end: 20190630
  9. ESTALIS [Concomitant]
     Active Substance: ESTRADIOL\NORETHINDRONE ACETATE
     Dosage: 50UG/250UG
  10. SOMAC [Concomitant]
     Active Substance: PANTOPRAZOLE SODIUM
     Dosage: 20 MG
  11. CIRCADIN [Concomitant]
     Active Substance: MELATONIN
     Dosage: 2 MG
  12. LORATADIN HEXAL [Concomitant]
     Active Substance: LORATADINE
     Dosage: 10 MG

REACTIONS (3)
  - Dysphagia [Recovered/Resolved]
  - Laryngospasm [Recovered/Resolved]
  - Off label use [Unknown]

NARRATIVE: CASE EVENT DATE: 20190615
